FAERS Safety Report 5858412-5 (Version None)
Quarter: 2008Q3

REPORT INFORMATION
  Report Type: 
  Country: None (occurrence: None)
  Receive Date: 20080826
  Receipt Date: 20080815
  Transmission Date: 20090109
  Serious: Yes (Other)
  Sender: FDA-Public Use
  Company Number: CN-ROCHE-581459

PATIENT
  Age: 27 Year
  Sex: Female

DRUGS (1)
  1. PEGASYS [Suspect]
     Indication: HEPATITIS B
     Route: 058
     Dates: start: 20070316

REACTIONS (2)
  - BENIGN HEPATIC NEOPLASM [None]
  - THYROID FUNCTION TEST ABNORMAL [None]
